FAERS Safety Report 7200308-0 (Version None)
Quarter: 2010Q4

REPORT INFORMATION
  Report Type: 
  Country: None (occurrence: None)
  Receive Date: 20101228
  Receipt Date: 20101221
  Transmission Date: 20110411
  Serious: Yes (Hospitalization)
  Sender: FDA-Public Use
  Company Number: B0690351A

PATIENT
  Sex: Female

DRUGS (3)
  1. AUGMENTIN [Suspect]
     Indication: ERYSIPELAS
     Route: 048
     Dates: start: 20101005, end: 20101104
  2. BACTRIM [Suspect]
     Indication: ERYSIPELAS
     Route: 048
     Dates: start: 20101005, end: 20101104
  3. PYOSTACINE [Concomitant]
     Indication: ERYSIPELAS
     Route: 048
     Dates: start: 20101104

REACTIONS (6)
  - BLISTER [None]
  - EOSINOPHILIA [None]
  - SKIN OEDEMA [None]
  - TOXIC SKIN ERUPTION [None]
  - URTICARIA [None]
  - VASCULITIS [None]
